FAERS Safety Report 10682277 (Version 5)
Quarter: 2015Q2

REPORT INFORMATION
  Report Type: Report from Study
  Country: US (occurrence: US)
  Receive Date: 20141230
  Receipt Date: 20150604
  Transmission Date: 20150821
  Serious: Yes (Hospitalization, Other)
  Sender: FDA-Public Use
  Company Number: US-GILEAD-2014-0129199

PATIENT
  Age: 73 Year
  Sex: Female

DRUGS (6)
  1. ORENITRAM [Concomitant]
     Active Substance: TREPROSTINIL
  2. SILDENAFIL CITRATE. [Concomitant]
     Active Substance: SILDENAFIL CITRATE
  3. TYVASO [Concomitant]
     Active Substance: TREPROSTINIL
  4. SILDENAFIL. [Concomitant]
     Active Substance: SILDENAFIL
  5. AMBRISENTAN [Suspect]
     Active Substance: AMBRISENTAN
     Indication: PULMONARY ARTERIAL HYPERTENSION
     Dosage: 10 MG, QD
     Route: 065
     Dates: start: 20120215
  6. REVATIO [Concomitant]
     Active Substance: SILDENAFIL CITRATE

REACTIONS (4)
  - Cardiac failure congestive [Unknown]
  - Pulmonary arterial hypertension [Unknown]
  - Asthenia [Unknown]
  - Dyspnoea [Unknown]
